FAERS Safety Report 7052634-6 (Version None)
Quarter: 2010Q4

REPORT INFORMATION
  Report Type: 
  Country: None (occurrence: None)
  Receive Date: 20101014
  Receipt Date: 20100930
  Transmission Date: 20110411
  Serious: Yes (Other)
  Sender: FDA-Public Use
  Company Number: 019663

PATIENT
  Sex: Female

DRUGS (4)
  1. TUSSIONEX [Suspect]
     Indication: COUGH
  2. TUSSIONEX [Suspect]
     Indication: EMPHYSEMA
  3. MUCINEX [Suspect]
     Indication: COUGH
  4. MUCINEX [Suspect]
     Indication: EMPHYSEMA

REACTIONS (1)
  - SPINAL COMPRESSION FRACTURE [None]
